FAERS Safety Report 7229643-7 (Version None)
Quarter: 2011Q1

REPORT INFORMATION
  Report Type: 
  Country: None (occurrence: None)
  Receive Date: 20110117
  Receipt Date: 20110105
  Transmission Date: 20110831
  Serious: Yes (Other)
  Sender: FDA-Public Use
  Company Number: PHHY2011AT01606

PATIENT
  Age: 67 Year
  Sex: Female

DRUGS (4)
  1. CGS 20267 [Suspect]
     Dosage: UNK
     Dates: start: 20091104
  2. CRESTOR [Concomitant]
     Indication: HYPERLIPIDAEMIA
  3. ASPIRIN [Concomitant]
     Indication: CORONARY ARTERY DISEASE
  4. DILTIAZEM [Concomitant]
     Indication: HYPERTENSION

REACTIONS (1)
  - BLOOD PRESSURE DIASTOLIC DECREASED [None]
